FAERS Safety Report 10865867 (Version 2)
Quarter: 2015Q1

REPORT INFORMATION
  Report Type: Report from Study
  Country: FR (occurrence: FR)
  Receive Date: 20150224
  Receipt Date: 20150324
  Transmission Date: 20150721
  Serious: Yes (Other)
  Sender: FDA-Public Use
  Company Number: FR-UCBSA-2015003164

PATIENT
  Age: 46 Year
  Sex: Female
  Weight: 64 kg

DRUGS (9)
  1. CERTOLIZUMAB PEGOL RA [Suspect]
     Active Substance: CERTOLIZUMAB PEGOL
     Dosage: DOSE: 200 MG
     Route: 058
     Dates: start: 20141219, end: 20141219
  2. AERIUS [Concomitant]
     Active Substance: DESLORATADINE
     Indication: ANGIOEDEMA
  3. PARACETAMOL [Concomitant]
     Active Substance: ACETAMINOPHEN
     Indication: RHEUMATOID ARTHRITIS
     Dosage: 500 MG, AS NEEDED (PRN)
     Dates: start: 20120718
  4. SOLUPRED [Concomitant]
     Active Substance: PREDNISOLONE
     Indication: RASH PAPULAR
     Dosage: UNK
     Dates: start: 20141219
  5. METHOTREXATE [Concomitant]
     Active Substance: METHOTREXATE
     Indication: RHEUMATOID ARTHRITIS
     Dosage: DOSE: 7.5 MG
     Route: 058
     Dates: start: 20120718, end: 201410
  6. CERTOLIZUMAB PEGOL RA [Suspect]
     Active Substance: CERTOLIZUMAB PEGOL
     Indication: RHEUMATOID ARTHRITIS
     Dosage: 200 MG, MONTHLY (QM)
     Route: 058
     Dates: start: 20120718, end: 201411
  7. AERIUS [Concomitant]
     Active Substance: DESLORATADINE
     Indication: RASH PAPULAR
     Dosage: UNKNOWN DOSE FOR CUTANEOUS ERUPTION
     Dates: start: 20141219, end: 20141220
  8. AERIUS [Concomitant]
     Active Substance: DESLORATADINE
     Indication: URTICARIA
     Dosage: 1 DF (TABLET) /DAY FOR ACUTE URTICARIA AND ANGIOEDEMA
     Dates: start: 20141221
  9. SPECIAFOLDINE [Concomitant]
     Active Substance: FOLIC ACID
     Indication: RHEUMATOID ARTHRITIS
     Dosage: UNK
     Route: 048
     Dates: start: 20120718

REACTIONS (7)
  - Dyspnoea [Recovered/Resolved]
  - Inappropriate schedule of drug administration [Unknown]
  - Angioedema [Recovered/Resolved]
  - Laryngitis [Recovered/Resolved]
  - Rash papular [Not Recovered/Not Resolved]
  - Urticaria [Recovered/Resolved]
  - Rash [Recovered/Resolved]

NARRATIVE: CASE EVENT DATE: 20120718
